FAERS Safety Report 6969014-1 (Version None)
Quarter: 2010Q3

REPORT INFORMATION
  Report Type: 
  Country: None (occurrence: None)
  Receive Date: 20100907
  Receipt Date: 20100826
  Transmission Date: 20110219
  Serious: Yes (Hospitalization)
  Sender: FDA-Public Use
  Company Number: US-ASTRAZENECA-2010SE40483

PATIENT
  Age: 24453 Day
  Sex: Female

DRUGS (10)
  1. ROSUVASTATIN [Suspect]
     Indication: CORONARY ARTERY DISEASE
     Route: 048
     Dates: start: 20080721
  2. BETAPACE [Concomitant]
     Indication: ARRHYTHMIA SUPRAVENTRICULAR
     Route: 048
  3. LASIX [Concomitant]
     Indication: CARDIAC FAILURE CONGESTIVE
     Route: 048
  4. COMBIVENT [Concomitant]
     Indication: CHRONIC OBSTRUCTIVE PULMONARY DISEASE
     Route: 055
  5. COREG [Concomitant]
     Indication: CARDIOMYOPATHY
     Route: 048
  6. PLAVIX [Concomitant]
     Indication: STENT PLACEMENT
     Route: 048
     Dates: start: 20080717
  7. ASPIRIN [Concomitant]
     Indication: CORONARY ARTERY DISEASE
     Route: 048
     Dates: start: 20080714
  8. NITROSTAT [Concomitant]
     Indication: CHEST PAIN
     Dosage: AS NEEDED
     Route: 060
     Dates: start: 20080714
  9. LISINOPRIL [Concomitant]
     Indication: CORONARY ARTERY DISEASE
     Route: 048
     Dates: start: 20091212
  10. SPIRONOLACTONE [Concomitant]
     Indication: CORONARY ARTERY DISEASE
     Route: 048
     Dates: start: 20100422

REACTIONS (1)
  - RENAL FAILURE ACUTE [None]
